FAERS Safety Report 8390923 (Version 3)
Quarter: 2013Q2

REPORT INFORMATION
  Report Type: Spontaneous
  Country: US (occurrence: US)
  Receive Date: 20120206
  Receipt Date: 20130423
  Transmission Date: 20140414
  Serious: Yes (Other)
  Sender: FDA-Public Use
  Company Number: US-PFIZER INC-2012025843

PATIENT
  Age: 83 Year
  Sex: Female

DRUGS (7)
  1. XALATAN [Suspect]
     Dosage: 0.005 %, 1X/DAY
     Route: 047
  2. LIPITOR [Concomitant]
     Dosage: UNK
  3. LEXAPRO [Concomitant]
     Dosage: UNK
  4. LORATADINE [Concomitant]
     Dosage: UNK
  5. MIRALAX [Concomitant]
     Dosage: UNK
  6. ASPIRIN [Concomitant]
     Dosage: UNK
  7. LEVOTHYROXINE [Concomitant]
     Dosage: UNK

REACTIONS (5)
  - Glaucoma [Unknown]
  - Intraocular pressure increased [Unknown]
  - Osteoporosis [Unknown]
  - Osteoarthritis [Unknown]
  - Depression [Unknown]
